FAERS Safety Report 24313314 (Version 1)
Quarter: 2024Q3

REPORT INFORMATION
  Report Type: Spontaneous
  Country: US (occurrence: None)
  Receive Date: 20240912
  Receipt Date: 20240912
  Transmission Date: 20241017
  Serious: No
  Sender: Public
  Company Number: None

PATIENT
  Sex: Male

DRUGS (2)
  1. OPSUMIT [Suspect]
     Active Substance: MACITENTAN
     Indication: Pulmonary arterial hypertension
     Dosage: FREQUENCY : DAILY;?
     Route: 048
     Dates: start: 202302
  2. UPTRAVI [Concomitant]
     Active Substance: SELEXIPAG

REACTIONS (7)
  - Headache [None]
  - Nausea [None]
  - Pain in jaw [None]
  - Decreased appetite [None]
  - Chest pain [None]
  - Ascites [None]
  - Dyspnoea exertional [None]
